FAERS Safety Report 17810564 (Version 1)
Quarter: 2020Q2

REPORT INFORMATION
  Report Type: Spontaneous
  Country: JP (occurrence: JP)
  Receive Date: 20200521
  Receipt Date: 20200521
  Transmission Date: 20200714
  Serious: Yes (Other)
  Sender: FDA-Public Use
  Company Number: JP-SA-2020SA128311

PATIENT
  Sex: Female

DRUGS (1)
  1. DUPIXENT [Suspect]
     Active Substance: DUPILUMAB
     Indication: DERMATITIS ATOPIC
     Dosage: INITIAL DOSE, 600 MG; 2ND DOSE, 300 MG
     Route: 058
     Dates: start: 201909

REACTIONS (1)
  - Cellulitis [Recovered/Resolved]
